FAERS Safety Report 10761268 (Version 4)
Quarter: 2016Q1

REPORT INFORMATION
  Report Type: Spontaneous
  Country: JP (occurrence: JP)
  Receive Date: 20150204
  Receipt Date: 20160201
  Transmission Date: 20160525
  Serious: Yes (Death, Hospitalization)
  Sender: FDA-Public Use
  Company Number: JP-AMGEN-JPNSP2015008967

PATIENT
  Age: 62 Year
  Sex: Male
  Weight: 39 kg

DRUGS (15)
  1. ALOXI [Concomitant]
     Active Substance: PALONOSETRON HYDROCHLORIDE
     Indication: RECTAL CANCER
     Dosage: 0.75 MG, QD
     Route: 042
     Dates: start: 20131210
  2. ELPLAT [Concomitant]
     Active Substance: OXALIPLATIN
     Indication: RECTAL CANCER
     Dosage: 90 MG, QD
     Route: 042
     Dates: start: 20140902
  3. OXYCONTIN [Concomitant]
     Active Substance: OXYCODONE HYDROCHLORIDE
     Indication: RECTAL CANCER
     Dosage: 30 MG, TID
     Route: 048
     Dates: start: 20131210
  4. LYRICA [Concomitant]
     Active Substance: PREGABALIN
     Indication: RECTAL CANCER
     Dosage: 75 MG, BID
     Route: 048
     Dates: start: 20131210
  5. MAGMITT [Concomitant]
     Active Substance: MAGNESIUM OXIDE
     Indication: RECTAL CANCER
     Dosage: 330 MG, TID
     Route: 048
     Dates: start: 20131210
  6. ISOVORIN                           /06682103/ [Concomitant]
     Active Substance: LEUCOVORIN CALCIUM
     Indication: RECTAL CANCER
     Dosage: 200 MG, QD
     Route: 042
     Dates: start: 20140902
  7. TAKEPRON [Concomitant]
     Active Substance: LANSOPRAZOLE
     Indication: RECTAL CANCER
     Dosage: 30 MG, QD
     Route: 048
     Dates: start: 20131210
  8. BEVACIZUMAB [Concomitant]
     Active Substance: BEVACIZUMAB
     Indication: RECTAL CANCER
     Dosage: UNK
     Dates: start: 20140902
  9. AVASTIN [Concomitant]
     Active Substance: BEVACIZUMAB
     Indication: RECTAL CANCER
     Dosage: 190 MG, Q2WK
     Route: 042
     Dates: start: 20140902, end: 20150120
  10. 5-FU                               /00098801/ [Concomitant]
     Active Substance: FLUOROURACIL
     Indication: RECTAL CANCER
     Dosage: 2900 MG, QD
     Route: 042
     Dates: start: 20140902
  11. RANMARK [Suspect]
     Active Substance: DENOSUMAB
     Indication: METASTASES TO BONE
     Dosage: 120 MG, Q4WK
     Route: 058
     Dates: start: 20131210, end: 20141007
  12. DECADRON [Concomitant]
     Active Substance: DEXAMETHASONE
     Indication: RECTAL CANCER
     Dosage: 3 MG, QD
     Route: 048
     Dates: start: 20131210
  13. CALONAL [Concomitant]
     Active Substance: ACETAMINOPHEN
     Indication: RECTAL CANCER
     Dosage: 600 MG, TID
     Route: 048
     Dates: start: 20131210
  14. DAIKENCHUTO [Concomitant]
     Active Substance: HERBALS
     Indication: RECTAL CANCER
     Dosage: 2.5 G, TID
     Route: 048
     Dates: start: 20131210
  15. FOLFIRI CETUXIMAB [Concomitant]
     Dosage: UNK
     Dates: start: 20131122

REACTIONS (2)
  - Osteonecrosis of jaw [Not Recovered/Not Resolved]
  - Osteomyelitis [Recovered/Resolved]

NARRATIVE: CASE EVENT DATE: 20141104
